FAERS Safety Report 5343231-9 (Version None)
Quarter: 2007Q2

REPORT INFORMATION
  Report Type: 
  Country: None (occurrence: None)
  Receive Date: 20070416
  Receipt Date: 20070206
  Transmission Date: 20071010
  Serious: No
  Sender: FDA-Public Use
  Company Number: 2007SP000417

PATIENT
  Age: 80 Year
  Sex: Male
  Weight: 78.0187 kg

DRUGS (6)
  1. LUNESTA [Suspect]
     Indication: INSOMNIA
     Dosage: 2 MG;PRN;ORAL
     Route: 048
     Dates: start: 20070101
  2. ANTIBIOTICS [Concomitant]
  3. WARFARIN SODIUM [Concomitant]
  4. POTASSIUM ACETATE [Concomitant]
  5. AMBIEN [Concomitant]
  6. TEMAZEPAM [Concomitant]

REACTIONS (3)
  - ABDOMINAL PAIN UPPER [None]
  - DRUG INEFFECTIVE [None]
  - MIDDLE INSOMNIA [None]
